FAERS Safety Report 7950451-3 (Version None)
Quarter: 2011Q4

REPORT INFORMATION
  Report Type: 
  Country: None (occurrence: None)
  Receive Date: 20111130
  Receipt Date: 20111122
  Transmission Date: 20120403
  Serious: Yes (Hospitalization)
  Sender: FDA-Public Use
  Company Number: JP-ABBOTT-11P-087-0845176-00

PATIENT
  Sex: Female

DRUGS (7)
  1. OMEPRAZOLE [Suspect]
     Indication: COLITIS ULCERATIVE
     Route: 048
     Dates: start: 20060101, end: 20110804
  2. FERROUS CITRATE [Concomitant]
     Indication: PRODUCT USED FOR UNKNOWN INDICATION
     Route: 048
  3. MESALAMINE [Suspect]
     Indication: COLITIS ULCERATIVE
     Route: 048
     Dates: start: 20100601, end: 20110804
  4. DEPAS [Suspect]
     Indication: DEPRESSION
     Route: 048
     Dates: start: 20100301, end: 20110804
  5. PREDNISOLONE [Concomitant]
     Indication: PRODUCT USED FOR UNKNOWN INDICATION
     Route: 048
  6. CEFAZOLIN SODIUM [Concomitant]
     Indication: PRODUCT USED FOR UNKNOWN INDICATION
     Route: 048
  7. IMURAN [Concomitant]
     Indication: PRODUCT USED FOR UNKNOWN INDICATION
     Route: 048
     Dates: start: 20040101

REACTIONS (1)
  - LUNG DISORDER [None]
